FAERS Safety Report 19929429 (Version 1)
Quarter: 2021Q4

REPORT INFORMATION
  Report Type: Spontaneous
  Country: ES (occurrence: ES)
  Receive Date: 20211007
  Receipt Date: 20211007
  Transmission Date: 20220303
  Serious: Yes (Other)
  Sender: FDA-Public Use
  Company Number: ES-PFIZER INC-202101280321

PATIENT
  Age: 28 Year
  Sex: Female
  Weight: 45 kg

DRUGS (7)
  1. LORAZEPAM [Suspect]
     Active Substance: LORAZEPAM
     Dosage: 1 MG, DAILY
  2. ZOMIG [Suspect]
     Active Substance: ZOLMITRIPTAN
     Dosage: 5 MG, DAILY
  3. CETIRIZINE [Suspect]
     Active Substance: CETIRIZINE HYDROCHLORIDE
     Dosage: 10 MG, DAILY
  4. FLUTICASONE FUROATE [Suspect]
     Active Substance: FLUTICASONE FUROATE
     Dosage: 27.5 UG, DAILY
  5. CALCIFEDIOL [Suspect]
     Active Substance: CALCIFEDIOL
     Dosage: 0.266 MG, MONTHLY
  6. COMIRNATY [Concomitant]
     Active Substance: TOZINAMERAN
     Indication: COVID-19 immunisation
     Dosage: DOSE 2, 0.3 ML, SINGLE
     Route: 030
     Dates: start: 20210818, end: 20210818
  7. COMIRNATY [Concomitant]
     Active Substance: TOZINAMERAN
     Dosage: DOSE 1, 0.3 ML, SINGLE
     Route: 030
     Dates: start: 20210728, end: 20210728

REACTIONS (6)
  - Off label use [Unknown]
  - Product use issue [Unknown]
  - Abortion spontaneous complete [Recovered/Resolved]
  - Haemorrhage in pregnancy [Unknown]
  - Genital haemorrhage [Unknown]
  - Pain [Unknown]

NARRATIVE: CASE EVENT DATE: 20210306
